FAERS Safety Report 6497332-2 (Version None)
Quarter: 2009Q4

REPORT INFORMATION
  Report Type: 
  Country: None (occurrence: None)
  Receive Date: 20091215
  Receipt Date: 20090928
  Transmission Date: 20100525
  Serious: No
  Sender: FDA-Public Use
  Company Number: A0809310A

PATIENT
  Age: 74 Year
  Sex: Male

DRUGS (6)
  1. AVODART [Suspect]
     Dosage: 1CAP PER DAY
     Route: 048
     Dates: start: 20090801
  2. FLOMAX [Concomitant]
  3. ATENOLOL [Concomitant]
  4. ACIPHEX [Concomitant]
  5. THYROID MEDICATION [Concomitant]
  6. CRESTOR [Concomitant]

REACTIONS (3)
  - DYSPEPSIA [None]
  - HEART RATE INCREASED [None]
  - HYPERTENSION [None]
